FAERS Safety Report 26083701 (Version 3)
Quarter: 2025Q4

REPORT INFORMATION
  Report Type: Report from Study
  Country: CO (occurrence: CO)
  Receive Date: 20251124
  Receipt Date: 20251224
  Transmission Date: 20260118
  Serious: No
  Sender: PFIZER
  Company Number: CO-PFIZER INC-202500230873

PATIENT
  Sex: Female

DRUGS (1)
  1. GENOTROPIN [Suspect]
     Active Substance: SOMATROPIN
     Dosage: 0.6 MG, DAILY

REACTIONS (5)
  - Circumstance or information capable of leading to medication error [Unknown]
  - Device use issue [Unknown]
  - Device occlusion [Unknown]
  - Device information output issue [Unknown]
  - Device leakage [Unknown]
